FAERS Safety Report 7540764-1 (Version None)
Quarter: 2011Q2

REPORT INFORMATION
  Report Type: 
  Country: None (occurrence: None)
  Receive Date: 20110610
  Receipt Date: 20110531
  Transmission Date: 20111010
  Serious: Yes (Other)
  Sender: FDA-Public Use
  Company Number: US-ROCHE-774294

PATIENT
  Sex: Male
  Weight: 86.4 kg

DRUGS (9)
  1. AVASTIN [Suspect]
     Indication: GLIOBLASTOMA
     Route: 042
     Dates: start: 20081126
  2. OMEPRAZOLE [Concomitant]
     Dosage: FREQUENCY; QD
  3. HYDROCODONE BITARTRATE [Concomitant]
     Dosage: DOSE:5/500 MG
  4. HYDROCHLOROTHIAZIDE [Concomitant]
     Dosage: DOSE:12.5, FREQUENCY:QD,UNIT:UNKNOWN
  5. LISINOPRIL [Concomitant]
     Dosage: FREQUENCY:QD
  6. CYMBALTA [Concomitant]
     Dosage: FREQUENCY:QD
  7. PROVIGIL [Concomitant]
     Dosage: FREQUENCY:QD,
  8. FLEXERIL [Concomitant]
  9. AMLODIPINE [Concomitant]
     Dosage: FREQUENCY:QD

REACTIONS (2)
  - GLIOBLASTOMA MULTIFORME [None]
  - SERUM SICKNESS [None]
